FAERS Safety Report 22023709 (Version 1)
Quarter: 2023Q1

REPORT INFORMATION
  Report Type: Spontaneous
  Country: US (occurrence: US)
  Receive Date: 20230223
  Receipt Date: 20230223
  Transmission Date: 20230418
  Serious: Yes (Hospitalization)
  Sender: FDA-Public Use
  Company Number: US-AVET LIFESCIENCES LTD-2023-AVET-000048

PATIENT
  Age: 41 Year
  Sex: Female

DRUGS (4)
  1. FLUOXETINE [Interacting]
     Active Substance: FLUOXETINE HYDROCHLORIDE
     Indication: Product used for unknown indication
     Dosage: 20 MILLIGRAM PER DAY
  2. CLOZAPINE [Interacting]
     Active Substance: CLOZAPINE
     Indication: Suicide attempt
     Dosage: 100 MG ORAL IN THE MORNING (500 MG IN DIVIDED DOSES)
     Route: 048
  3. CLOZAPINE [Interacting]
     Active Substance: CLOZAPINE
     Dosage: 400 MG ORAL AT BEDTIME (500 MG IN DIVIDED DOSES)
     Route: 048
  4. DILTIAZEM [Interacting]
     Active Substance: DILTIAZEM
     Indication: Hypertension
     Dosage: DILTIAZEM CONTROLLED DELIVERY 180 MG TWICE/D

REACTIONS (6)
  - Toxicity to various agents [Recovered/Resolved]
  - Drug interaction [Unknown]
  - Ventricular extrasystoles [Recovered/Resolved]
  - Drug level increased [Recovered/Resolved]
  - Electrocardiogram QT prolonged [Recovered/Resolved]
  - Torsade de pointes [Recovered/Resolved]
